FAERS Safety Report 25118286 (Version 1)
Quarter: 2025Q1

REPORT INFORMATION
  Report Type: Spontaneous
  Country: CN (occurrence: CN)
  Receive Date: 20250325
  Receipt Date: 20250325
  Transmission Date: 20250409
  Serious: Yes (Hospitalization)
  Sender: ROCHE
  Company Number: CN-ROCHE-10000235176

PATIENT
  Age: 67 Year
  Sex: Male

DRUGS (3)
  1. BEVACIZUMAB [Suspect]
     Active Substance: BEVACIZUMAB
     Indication: Solitary fibrous tumour
     Dosage: 300 MG D8 Q2W
     Route: 065
     Dates: start: 20231020
  2. TEMOZOLOMIDE [Suspect]
     Active Substance: TEMOZOLOMIDE
     Indication: Solitary fibrous tumour
     Route: 065
     Dates: start: 20231020
  3. SORAFENIB [Suspect]
     Active Substance: SORAFENIB
     Indication: Solitary fibrous tumour
     Route: 065
     Dates: start: 202106

REACTIONS (1)
  - Disease progression [Unknown]
